FAERS Safety Report 11417591 (Version 1)
Quarter: 2015Q3

REPORT INFORMATION
  Report Type: Spontaneous
  Country: US (occurrence: US)
  Receive Date: 20150825
  Receipt Date: 20150825
  Transmission Date: 20151125
  Serious: No
  Sender: FDA-Public Use
  Company Number: US-TARO-2014TAR00370

PATIENT
  Age: 43 Year
  Sex: Female
  Weight: 71.66 kg

DRUGS (4)
  1. CLOBETASOL PROPIONATE CREAM USP 0.05% [Suspect]
     Active Substance: CLOBETASOL PROPIONATE
     Indication: DYSHIDROTIC ECZEMA
     Dosage: UNK
     Route: 061
     Dates: start: 201211, end: 2013
  2. ADVIL [Concomitant]
     Active Substance: IBUPROFEN
     Dosage: UNK, AS NEEDED
  3. CETAPHIL [Suspect]
     Active Substance: AVOBENZONE\OCTOCRYLENE\TRICLOSAN
     Dosage: UNK
     Dates: end: 20140912
  4. CLOBETASOL PROPIONATE OINTMENT USP 0.05% [Suspect]
     Active Substance: CLOBETASOL PROPIONATE
     Indication: DYSHIDROTIC ECZEMA
     Dosage: UNK
     Route: 061
     Dates: start: 20131021, end: 20140912

REACTIONS (3)
  - Burning sensation [Unknown]
  - Peripheral swelling [Unknown]
  - Chemical injury [Not Recovered/Not Resolved]

NARRATIVE: CASE EVENT DATE: 201211
